FAERS Safety Report 10503228 (Version 2)
Quarter: 2014Q4

REPORT INFORMATION
  Report Type: Report from Study
  Country: LB (occurrence: LB)
  Receive Date: 20141008
  Receipt Date: 20141124
  Transmission Date: 20150528
  Serious: Yes (Other)
  Sender: FDA-Public Use
  Company Number: LB-ROCHE-1470568

PATIENT
  Age: 17 Year
  Sex: Female

DRUGS (1)
  1. XOLAIR [Suspect]
     Active Substance: OMALIZUMAB
     Indication: ASTHMA
     Route: 058
     Dates: start: 20140926

REACTIONS (2)
  - Erythema [Unknown]
  - Extremity necrosis [Recovering/Resolving]

NARRATIVE: CASE EVENT DATE: 20140927
